FAERS Safety Report 17103500 (Version 1)
Quarter: 2019Q4

REPORT INFORMATION
  Report Type: Spontaneous
  Country: US (occurrence: US)
  Receive Date: 20191203
  Receipt Date: 20191203
  Transmission Date: 20200122
  Serious: No
  Sender: FDA-Public Use
  Company Number: US-ASTRAZENECA-2019SF57862

PATIENT
  Sex: Female

DRUGS (2)
  1. SINGULAIR [Concomitant]
     Active Substance: MONTELUKAST SODIUM
     Route: 065
  2. FASENRA [Suspect]
     Active Substance: BENRALIZUMAB
     Indication: ASTHMA
     Dosage: 1 INJECTION EVERY 4 WEEKS FOR THE FIRST 3 INJECTIONS, FOLLOWED BY 1 INJECTION EVERY 8 WEEKS.
     Route: 058
     Dates: start: 201904

REACTIONS (2)
  - Symptom recurrence [Unknown]
  - Drug ineffective [Unknown]
